FAERS Safety Report 5756039-7 (Version None)
Quarter: 2008Q2

REPORT INFORMATION
  Report Type: 
  Country: None (occurrence: None)
  Receive Date: 20080602
  Receipt Date: 20080526
  Transmission Date: 20081010
  Serious: Yes (Hospitalization, Other)
  Sender: FDA-Public Use
  Company Number: PHHY2008CL08576

PATIENT
  Age: 51 Year

DRUGS (2)
  1. CLOZAPINE [Suspect]
     Dosage: 100 MG, QD
  2. ZOLPIDEM [Concomitant]

REACTIONS (2)
  - ABDOMINAL PAIN [None]
  - COLITIS ISCHAEMIC [None]
